FAERS Safety Report 7349081-6 (Version None)
Quarter: 2011Q1

REPORT INFORMATION
  Report Type: 
  Country: None (occurrence: None)
  Receive Date: 20110314
  Receipt Date: 20110303
  Transmission Date: 20110831
  Serious: Yes (Death, Hospitalization, Disabling, Other)
  Sender: FDA-Public Use
  Company Number: US-CELGENEUS-163-21880-11021917

PATIENT
  Age: 67 Year
  Sex: Male

DRUGS (10)
  1. FLUOXETINE [Concomitant]
     Route: 065
  2. IPRATROPIUM BROMIDE [Concomitant]
     Route: 065
  3. FLUTICASONE [Concomitant]
     Route: 045
  4. TERAZOSIN [Concomitant]
     Route: 065
  5. REVLIMID [Suspect]
     Indication: MYELOFIBROSIS
     Dosage: 5 MILLIGRAM
     Route: 048
     Dates: start: 20091001, end: 20110201
  6. PROAIR HFA [Concomitant]
     Route: 065
  7. OMEPRAZOLE [Concomitant]
     Route: 065
  8. HYDROCODONE BITARTRATE + ACETAMINOPHEN [Concomitant]
     Route: 065
  9. REVLIMID [Suspect]
     Dosage: 2.5 MILLIGRAM
     Route: 048
     Dates: start: 20110216
  10. QVAR 40 [Concomitant]
     Route: 065

REACTIONS (5)
  - ATRIAL FIBRILLATION [None]
  - PANCYTOPENIA [None]
  - PNEUMOTHORAX [None]
  - SUBCUTANEOUS EMPHYSEMA [None]
  - FALL [None]
